FAERS Safety Report 9387968 (Version 3)
Quarter: 2013Q3

REPORT INFORMATION
  Report Type: Spontaneous
  Country: KR (occurrence: None)
  Receive Date: 20130703
  Receipt Date: 20130715
  Transmission Date: 20140515
  Serious: Yes (Hospitalization)
  Sender: FDA-Public Use
  Company Number: KR-JNJFOC-20130605910

PATIENT
  Age: 55 Year
  Sex: Male
  Weight: 65 kg

DRUGS (3)
  1. DACOGEN (DECITABINE) LYOPHILIZED POWDER [Suspect]
     Indication: MYELODYSPLASTIC SYNDROME
     Route: 042
     Dates: start: 20130408, end: 20130412
  2. CIROK (CIPROFLOXACIN) CAPSULE [Concomitant]
  3. SEPTRIN (BACTRIM  TABLET /00086101/) [Concomitant]

REACTIONS (3)
  - Febrile neutropenia [None]
  - Bronchopulmonary aspergillosis [None]
  - Bronchopulmonary aspergillosis [None]
